FAERS Safety Report 17816448 (Version 6)
Quarter: 2020Q2

REPORT INFORMATION
  Report Type: Spontaneous
  Country: US (occurrence: US)
  Receive Date: 20200522
  Receipt Date: 20200630
  Transmission Date: 20200714
  Serious: No
  Sender: FDA-Public Use
  Company Number: US-PFIZER INC-2020202309

PATIENT
  Age: 78 Year
  Sex: Male
  Weight: 90.26 kg

DRUGS (2)
  1. INLYTA [Suspect]
     Active Substance: AXITINIB
     Dosage: 1 MG, UNK
  2. INLYTA [Suspect]
     Active Substance: AXITINIB
     Indication: RENAL CANCER
     Dosage: 5 MG, 2X/DAY
     Route: 048
     Dates: start: 20200512, end: 20200527

REACTIONS (13)
  - Dyspnoea [Unknown]
  - Nocturia [Unknown]
  - Constipation [Unknown]
  - Insomnia [Unknown]
  - Balance disorder [Unknown]
  - Disturbance in attention [Unknown]
  - Abnormal faeces [Unknown]
  - Malaise [Not Recovered/Not Resolved]
  - Dysphonia [Unknown]
  - Glossodynia [Unknown]
  - Weight decreased [Unknown]
  - Asthenia [Unknown]
  - Disorientation [Unknown]

NARRATIVE: CASE EVENT DATE: 2020
